FAERS Safety Report 20074283 (Version 1)
Quarter: 2021Q4

REPORT INFORMATION
  Report Type: Spontaneous
  Country: US (occurrence: None)
  Receive Date: 20211115
  Receipt Date: 20211115
  Transmission Date: 20220303
  Serious: Yes (Hospitalization)
  Sender: FDA-Public Use
  Company Number: None

PATIENT
  Age: 57 Year
  Sex: Male
  Weight: 78.75 kg

DRUGS (2)
  1. KRYSTEXXA [Suspect]
     Active Substance: PEGLOTICASE
     Indication: Gout
     Dosage: OTHER FREQUENCY : EVERY 2 WEEKS;?
     Route: 042
     Dates: start: 20211101, end: 20211115
  2. KRYSTEXXA [Concomitant]
     Active Substance: PEGLOTICASE
     Dates: start: 20211101, end: 20211115

REACTIONS (2)
  - Syncope [None]
  - Infusion related reaction [None]

NARRATIVE: CASE EVENT DATE: 20211115
